FAERS Safety Report 11752511 (Version 1)
Quarter: 2015Q4

REPORT INFORMATION
  Report Type: Spontaneous
  Country: US (occurrence: US)
  Receive Date: 20151119
  Receipt Date: 20151119
  Transmission Date: 20160304
  Serious: Yes (Other)
  Sender: FDA-Public Use
  Company Number: US-PFIZER INC-2015381158

PATIENT
  Sex: Male

DRUGS (2)
  1. GABAPENTIN. [Suspect]
     Active Substance: GABAPENTIN
     Dosage: 2700 MG, UNK
  2. GABAPENTIN. [Suspect]
     Active Substance: GABAPENTIN
     Dosage: 1800 MG, DAILY

REACTIONS (5)
  - Tremor [Recovered/Resolved]
  - Dyspnoea [Recovered/Resolved]
  - Disturbance in attention [Recovered/Resolved]
  - Anxiety [Recovered/Resolved]
  - Mental impairment [Recovered/Resolved]
